FAERS Safety Report 16850278 (Version 1)
Quarter: 2019Q3

REPORT INFORMATION
  Report Type: Spontaneous
  Country: CH (occurrence: CH)
  Receive Date: 20190925
  Receipt Date: 20190925
  Transmission Date: 20191005
  Serious: Yes (Other)
  Sender: FDA-Public Use
  Company Number: CH-JNJFOC-20190923755

PATIENT
  Age: 56 Year
  Sex: Female

DRUGS (2)
  1. EVITHROM [Suspect]
     Active Substance: THROMBIN HUMAN
     Indication: HAEMORRHAGE
     Route: 061
  2. TRAUMASTEM [Suspect]
     Active Substance: CELLULOSE, OXIDIZED\DEVICE
     Indication: HAEMORRHAGE

REACTIONS (2)
  - Iliac artery occlusion [Recovered/Resolved with Sequelae]
  - Peripheral ischaemia [Recovered/Resolved with Sequelae]
